FAERS Safety Report 4971083-5 (Version None)
Quarter: 2006Q1

REPORT INFORMATION
  Report Type: 
  Country: None (occurrence: None)
  Receive Date: 20060228
  Receipt Date: 20050411
  Transmission Date: 20060701
  Serious: Yes (Hospitalization)
  Sender: FDA-Public Use
  Company Number: 050411-0000623

PATIENT
  Sex: Male

DRUGS (1)
  1. DESOXYN [Suspect]
     Dosage: 5 MG;TID;PO
     Route: 048
     Dates: end: 20050119

REACTIONS (2)
  - CONFUSIONAL STATE [None]
  - INTENTIONAL OVERDOSE [None]
